FAERS Safety Report 11875872 (Version 1)
Quarter: 2015Q4

REPORT INFORMATION
  Report Type: Spontaneous
  Country: US (occurrence: US)
  Receive Date: 20151229
  Receipt Date: 20151229
  Transmission Date: 20160305
  Serious: Yes (Death, Hospitalization)
  Sender: FDA-Public Use
  Company Number: US-DRREDDYS-USA/USA/15/0055048

PATIENT
  Age: 51 Year
  Sex: Male

DRUGS (6)
  1. SIROLIMUS. [Suspect]
     Active Substance: SIROLIMUS
     Indication: METASTASES TO SPLEEN
  2. SIROLIMUS. [Suspect]
     Active Substance: SIROLIMUS
     Indication: MALIGNANT NEOPLASM OF ISLETS OF LANGERHANS
     Route: 065
  3. OCTREOTIDE. [Suspect]
     Active Substance: OCTREOTIDE
     Indication: METASTASES TO LIVER
  4. OCTREOTIDE. [Suspect]
     Active Substance: OCTREOTIDE
     Indication: METASTASES TO SPLEEN
  5. SIROLIMUS. [Suspect]
     Active Substance: SIROLIMUS
     Indication: METASTASES TO LIVER
  6. OCTREOTIDE. [Suspect]
     Active Substance: OCTREOTIDE
     Indication: MALIGNANT NEOPLASM OF ISLETS OF LANGERHANS
     Route: 065

REACTIONS (6)
  - Multi-organ failure [Fatal]
  - Acute hepatic failure [Fatal]
  - Hepatitis B [Fatal]
  - Hepatic encephalopathy [Fatal]
  - Hypotension [Unknown]
  - Oliguria [Unknown]
